FAERS Safety Report 12234226 (Version 10)
Quarter: 2017Q3

REPORT INFORMATION
  Report Type: Spontaneous
  Country: US (occurrence: US)
  Receive Date: 20160404
  Receipt Date: 20170705
  Transmission Date: 20171127
  Serious: Yes (Hospitalization, Other)
  Sender: FDA-Public Use
  Company Number: US-PFIZER INC-2016175151

PATIENT
  Age: 41 Year
  Sex: Female
  Weight: 58.5 kg

DRUGS (12)
  1. IBRANCE [Suspect]
     Active Substance: PALBOCICLIB
     Dosage: 125 MG, CYCLIC (DAYS 1-21 EVERY 28 DAYS)
     Route: 048
  2. IBRANCE [Suspect]
     Active Substance: PALBOCICLIB
     Dosage: 125 MG, CYCLIC (DAYS 1-21 EVERY 28 DAYS)
     Route: 048
  3. IBRANCE [Suspect]
     Active Substance: PALBOCICLIB
     Dosage: 125 MG, CYCLIC (D1-D21 Q 28 D)
     Route: 048
     Dates: start: 20160309
  4. OXYBUTYNIN [Concomitant]
     Active Substance: OXYBUTYNIN
     Dosage: UNK
  5. PERCOCET [Concomitant]
     Active Substance: ACETAMINOPHEN\OXYCODONE HYDROCHLORIDE
     Dosage: UNK, AS NEEDED (PRN)
  6. IBRANCE [Suspect]
     Active Substance: PALBOCICLIB
     Indication: BREAST CANCER METASTATIC
     Dosage: 125 MG, CYCLIC (DAYS 1-21 EVERY 28 DAYS)
     Route: 048
     Dates: start: 20160309
  7. IBRANCE [Suspect]
     Active Substance: PALBOCICLIB
     Dosage: 125 MG, CYCLIC (DAYS 1-21 EVERY 28 DAYS)
     Route: 048
  8. IBRANCE [Suspect]
     Active Substance: PALBOCICLIB
     Dosage: 125 MG, CYCLIC (DAYS 1-21 EVERY 28 DAYS)
     Route: 048
  9. LETROZOLE. [Suspect]
     Active Substance: LETROZOLE
     Dosage: UNK
  10. IBRANCE [Suspect]
     Active Substance: PALBOCICLIB
     Dosage: 125 MG, CYCLIC (DAYS 1-21 EVERY 28 DAYS)
     Route: 048
  11. IBRANCE [Suspect]
     Active Substance: PALBOCICLIB
     Dosage: 125 MG, CYCLIC (DAYS 1-21 EVERY 28 DAYS)
     Route: 048
  12. IBRANCE [Suspect]
     Active Substance: PALBOCICLIB
     Dosage: 125 MG, CYCLIC (D 1-21 Q 28 DAYS)
     Route: 048

REACTIONS (26)
  - Fluid retention [Unknown]
  - Dysgeusia [Unknown]
  - Nausea [Not Recovered/Not Resolved]
  - Vulval oedema [Recovering/Resolving]
  - Decreased appetite [Not Recovered/Not Resolved]
  - Headache [Not Recovered/Not Resolved]
  - Asthenia [Not Recovered/Not Resolved]
  - Muscle spasms [Unknown]
  - Dry skin [Unknown]
  - Pain in extremity [Not Recovered/Not Resolved]
  - Vulvovaginal discomfort [Recovering/Resolving]
  - Fatigue [Not Recovered/Not Resolved]
  - Haemorrhage [Unknown]
  - Drug dose omission [Unknown]
  - Dyspepsia [Unknown]
  - Tenderness [Unknown]
  - Thrombosis [Not Recovered/Not Resolved]
  - Peripheral swelling [Not Recovered/Not Resolved]
  - Gastrooesophageal reflux disease [Unknown]
  - Haemoglobin decreased [Recovering/Resolving]
  - Erythema [Unknown]
  - Gait disturbance [Not Recovered/Not Resolved]
  - Genital swelling [Recovering/Resolving]
  - Abdominal distension [Unknown]
  - Pain [Unknown]
  - Renal pain [Unknown]
